FAERS Safety Report 13993603 (Version 1)
Quarter: 2017Q3

REPORT INFORMATION
  Report Type: Spontaneous
  Country: CA (occurrence: CA)
  Receive Date: 20170920
  Receipt Date: 20170920
  Transmission Date: 20171128
  Serious: Yes (Other)
  Sender: FDA-Public Use
  Company Number: CA-SA-2017SA166782

PATIENT
  Age: 70 Year
  Sex: Female

DRUGS (4)
  1. LEFLUNOMIDE. [Suspect]
     Active Substance: LEFLUNOMIDE
     Route: 048
  2. RITUXIMAB. [Suspect]
     Active Substance: RITUXIMAB
     Route: 065
  3. ENBREL [Suspect]
     Active Substance: ETANERCEPT
     Indication: RHEUMATOID ARTHRITIS
     Route: 065
  4. HUMIRA [Suspect]
     Active Substance: ADALIMUMAB
     Indication: RHEUMATOID ARTHRITIS
     Dosage: SOLUTION?SUBCUTANEOUS
     Route: 065

REACTIONS (12)
  - Disease progression [Unknown]
  - Joint swelling [Unknown]
  - Condition aggravated [Unknown]
  - Blood pressure increased [Unknown]
  - Mobility decreased [Unknown]
  - Drug ineffective [Unknown]
  - Pain [Unknown]
  - Peripheral swelling [Unknown]
  - Hepatic steatosis [Unknown]
  - Nausea [Unknown]
  - Pneumonia [Unknown]
  - Steatohepatitis [Unknown]
